FAERS Safety Report 8254807-3 (Version None)
Quarter: 2012Q2

REPORT INFORMATION
  Report Type: 
  Country: None (occurrence: None)
  Receive Date: 20120403
  Receipt Date: 20120329
  Transmission Date: 20120825
  Serious: No
  Sender: FDA-Public Use
  Company Number: PHHY2011VE106516

PATIENT
  Sex: Female

DRUGS (2)
  1. GILENYA [Suspect]
     Indication: MULTIPLE SCLEROSIS
     Route: 048
  2. NORVASC [Concomitant]
     Dosage: 5 MG, QD
     Route: 048

REACTIONS (1)
  - HEADACHE [None]
